FAERS Safety Report 8377334-1 (Version None)
Quarter: 2012Q2

REPORT INFORMATION
  Report Type: 
  Country: None (occurrence: None)
  Receive Date: 20120521
  Receipt Date: 20120504
  Transmission Date: 20120825
  Serious: Yes (Other)
  Sender: FDA-Public Use
  Company Number: THQ2012A02744

PATIENT
  Age: 70 Year
  Sex: Male

DRUGS (1)
  1. PIOGLITAZONE HYDROCHLORIDE [Suspect]
     Indication: TYPE 2 DIABETES MELLITUS
     Dosage: (PIOGLITAZONE HYDROCHLORIDE 15 PER ORAL
     Route: 048

REACTIONS (1)
  - PROSTATE CANCER [None]
